FAERS Safety Report 5652700-3 (Version None)
Quarter: 2008Q1

REPORT INFORMATION
  Report Type: 
  Country: None (occurrence: None)
  Receive Date: 20080305
  Receipt Date: 20080305
  Transmission Date: 20080703
  Serious: Yes (Hospitalization)
  Sender: FDA-Public Use
  Company Number: None

PATIENT
  Age: 89 Year
  Sex: Male

DRUGS (1)
  1. METOPROLOL TARTRATE [Suspect]
     Dosage: 12.5MG  BID  PO
     Route: 048
     Dates: start: 20070226, end: 20071220

REACTIONS (2)
  - DIARRHOEA [None]
  - SYNCOPE [None]
